FAERS Safety Report 6499252-6 (Version None)
Quarter: 2009Q4

REPORT INFORMATION
  Report Type: 
  Country: None (occurrence: None)
  Receive Date: 20091215
  Receipt Date: 20091209
  Transmission Date: 20100525
  Serious: Yes (Life-Threatening)
  Sender: FDA-Public Use
  Company Number: JP-BAYER-200914855BYL

PATIENT
  Age: 81 Year
  Sex: Male

DRUGS (1)
  1. NEXAVAR [Suspect]
     Indication: HEPATIC NEOPLASM MALIGNANT
     Dosage: UNIT DOSE: 200 MG
     Route: 048
     Dates: start: 20091120, end: 20091125

REACTIONS (3)
  - CEREBRAL INFARCTION [None]
  - CHEST DISCOMFORT [None]
  - DECREASED APPETITE [None]
